FAERS Safety Report 10572495 (Version 2)
Quarter: 2014Q4

REPORT INFORMATION
  Report Type: Report from Study
  Country: US (occurrence: US)
  Receive Date: 20141110
  Receipt Date: 20141127
  Transmission Date: 20150529
  Serious: Yes (Death, Hospitalization)
  Sender: FDA-Public Use
  Company Number: US-ROCHE-1487154

PATIENT
  Age: 48 Year

DRUGS (2)
  1. BEVACIZUMAB [Suspect]
     Active Substance: BEVACIZUMAB
     Indication: GLIOBLASTOMA MULTIFORME
     Dosage: 14 DAYS PER CYCLE. 10MG/KG OVER 30-90MIN ON DAY 1. DATE OF MOST RECENT DOSE PRIOR TO SAE 12/AUG/2014
     Route: 042
     Dates: start: 20140701
  2. TRC105 [Suspect]
     Active Substance: INVESTIGATIONAL PRODUCT
     Indication: GLIOBLASTOMA MULTIFORME
     Dosage: 10MG/KG OVER 1-4 HOURS ON DAY 1 AND 8. 3 MG/KG OVER 1-4 HOURS ON DAY 8 AND 7MG/KG OVER 1-4 HOURS ON
     Route: 042

REACTIONS (6)
  - Acute kidney injury [Unknown]
  - Anaemia [Unknown]
  - Blood creatinine increased [Unknown]
  - Haemorrhage intracranial [Fatal]
  - Urinary tract infection [Unknown]
  - Headache [Not Recovered/Not Resolved]

NARRATIVE: CASE EVENT DATE: 20140823
